FAERS Safety Report 9454864 (Version 1)
Quarter: 2013Q3

REPORT INFORMATION
  Report Type: Report from Study
  Country: DE (occurrence: DE)
  Receive Date: 20130813
  Receipt Date: 20130813
  Transmission Date: 20140515
  Serious: No
  Sender: FDA-Public Use
  Company Number: PHHY2013DE081446

PATIENT
  Sex: Female

DRUGS (4)
  1. AMN107 [Suspect]
     Indication: CHRONIC MYELOID LEUKAEMIA
     Dosage: 600 MG/DAY
     Route: 048
     Dates: start: 20120531
  2. PAROXEDURA [Concomitant]
     Dosage: UNK
  3. PANTOPRAZOL [Concomitant]
     Dosage: 40 MG, UNK
     Dates: start: 20120621
  4. ZACPAC [Concomitant]
     Dosage: UNK
     Dates: start: 20121012, end: 20121019

REACTIONS (2)
  - Dermatitis [Recovered/Resolved]
  - Gastritis [Not Recovered/Not Resolved]
